FAERS Safety Report 4944383-2 (Version None)
Quarter: 2006Q1

REPORT INFORMATION
  Report Type: 
  Country: None (occurrence: None)
  Receive Date: 20060315
  Receipt Date: 20051219
  Transmission Date: 20060701
  Serious: Yes (Hospitalization)
  Sender: FDA-Public Use
  Company Number: JP-BRISTOL-MYERS SQUIBB COMPANY-13312061

PATIENT
  Age: 75 Year
  Sex: Male

DRUGS (10)
  1. RESLIN [Suspect]
     Indication: DEPRESSION
     Dosage: THERAPY WAS STARTED AT 25 MG/D AND INCREASED TO 50 MG/D ON 21-JUL-2004.
     Route: 048
     Dates: start: 20010723, end: 20051014
  2. TOFRANIL [Concomitant]
     Route: 048
     Dates: start: 20041201, end: 20051019
  3. FLIVAS [Concomitant]
     Dates: start: 20050501, end: 20051019
  4. PIMENOL [Concomitant]
     Dates: end: 20051019
  5. BLOPRESS [Concomitant]
  6. NORVASC [Concomitant]
  7. PRIMPERAN TAB [Concomitant]
     Dates: end: 20051019
  8. ADETPHOS [Concomitant]
     Dates: end: 20051019
  9. ACECOL [Concomitant]
     Dates: end: 20051019
  10. CYANOCOBALAMIN [Concomitant]

REACTIONS (5)
  - ANXIETY [None]
  - DYSPNOEA [None]
  - HYPERHIDROSIS [None]
  - HYPOVOLAEMIC SHOCK [None]
  - SUPRAVENTRICULAR TACHYCARDIA [None]
